FAERS Safety Report 15883199 (Version 1)
Quarter: 2019Q1

REPORT INFORMATION
  Report Type: Spontaneous
  Country: US (occurrence: US)
  Receive Date: 20190129
  Receipt Date: 20190129
  Transmission Date: 20190417
  Serious: No
  Sender: FDA-Public Use
  Company Number: US-TEVA-2019-US-995005

PATIENT
  Sex: Male

DRUGS (1)
  1. TRIENTINE HYDROCHLORIDE CAPSULES [Suspect]
     Active Substance: TRIENTINE HYDROCHLORIDE
     Dosage: DOSE STRENGTH:  250
     Route: 065

REACTIONS (1)
  - Therapy cessation [Unknown]
